FAERS Safety Report 4877282-5 (Version None)
Quarter: 2006Q1

REPORT INFORMATION
  Report Type: 
  Country: None (occurrence: None)
  Receive Date: 20060106
  Receipt Date: 20050608
  Transmission Date: 20060701
  Serious: Yes (Life-Threatening, Other)
  Sender: FDA-Public Use
  Company Number: 2006-CZ-00017

PATIENT
  Age: 48 Year
  Sex: Female

DRUGS (8)
  1. METRONIDAZOLE [Suspect]
     Indication: CELLULITIS
     Dosage: 1500 MG, 3 IN 1 D, INTRAVENOUS
     Route: 042
     Dates: start: 20050504, end: 20050512
  2. CEFUROXIME [Suspect]
     Indication: CELLULITIS
     Dosage: 4.5 GM, 3 IN 1 D, INTRAVENOUS
     Route: 042
     Dates: start: 20050504, end: 20050512
  3. CLINDAMYCIN [Suspect]
     Indication: CELLULITIS
     Dosage: 450 MG, 1 IN 1 D, ORAL
     Route: 048
     Dates: start: 20050504, end: 20050512
  4. IBUPROFEN [Concomitant]
  5. ENOXAPARIN [Concomitant]
  6. PARAFFIN, LIQUID [Concomitant]
  7. TEICOPLANIN [Concomitant]
  8. ACETAMINOPHEN W/ CODEINE [Concomitant]

REACTIONS (2)
  - RASH [None]
  - SWOLLEN TONGUE [None]
